FAERS Safety Report 7608191 (Version 5)
Quarter: 2013Q1

REPORT INFORMATION
  Report Type: Spontaneous
  Country: US (occurrence: US)
  Receive Date: 20100927
  Receipt Date: 20130211
  Transmission Date: 20140127
  Serious: Yes (Hospitalization, Other)
  Sender: FDA-Public Use
  Company Number: US-ASTRAZENECA-2010SE16460

PATIENT
  Age: 78 Year
  Sex: Female

DRUGS (18)
  1. ARIMIDEX [Suspect]
     Indication: BREAST CANCER FEMALE
     Route: 048
     Dates: start: 2007
  2. ARIMIDEX [Suspect]
     Indication: BREAST CANCER FEMALE
     Route: 048
     Dates: start: 20080117
  3. SYMBICORT [Suspect]
     Dosage: 160/4.5 MCG  TWO TIMES A DAY, AS NEEDED
     Route: 055
  4. CRESTOR [Suspect]
     Route: 048
  5. LOPRESSOR [Concomitant]
  6. SINGULAIR [Concomitant]
  7. ASPIRIN [Concomitant]
  8. PROTONIX [Concomitant]
  9. PLAVIX [Concomitant]
  10. AZOR [Concomitant]
     Dosage: 10MG/40MG ONE DAILY
  11. SYNTHROID [Concomitant]
  12. TYLENOL [Concomitant]
     Dosage: OCCASIONALLY
  13. POTASSIUM CHLORIDE [Concomitant]
     Dosage: ONE AND HALF TEASPOONS
  14. ELAVIL [Concomitant]
  15. METANX [Concomitant]
  16. ADRIAMYCIN [Concomitant]
  17. CYTOXAL [Concomitant]
  18. HERCEPTIN [Concomitant]

REACTIONS (16)
  - Malaise [Unknown]
  - Cataract [Unknown]
  - Joint injury [Unknown]
  - Cholelithiasis [Unknown]
  - Neoplasm malignant [Unknown]
  - Dehydration [Unknown]
  - Diarrhoea [Unknown]
  - Gastroenteritis viral [Unknown]
  - Vomiting [Unknown]
  - Hiatus hernia [Unknown]
  - Polyp [Unknown]
  - Influenza [Unknown]
  - Sinusitis [Unknown]
  - Gait disturbance [Unknown]
  - Arthritis [Unknown]
  - Hypoacusis [Unknown]
